FAERS Safety Report 8253485-7 (Version None)
Quarter: 2012Q2

REPORT INFORMATION
  Report Type: 
  Country: None (occurrence: None)
  Receive Date: 20120402
  Receipt Date: 20120302
  Transmission Date: 20120825
  Serious: No
  Sender: FDA-Public Use
  Company Number: US-AMGEN-USASP2012014098

PATIENT
  Age: 48 Year
  Sex: Female

DRUGS (2)
  1. ENBREL [Suspect]
     Indication: PSORIATIC ARTHROPATHY
  2. ENBREL [Suspect]
     Indication: PSORIASIS
     Dosage: 50 MG, 2 TIMES/WK
     Dates: start: 20100126

REACTIONS (6)
  - UPPER RESPIRATORY TRACT INFECTION [None]
  - PSORIASIS [None]
  - PAIN IN EXTREMITY [None]
  - GAIT DISTURBANCE [None]
  - CONSTIPATION [None]
  - EAR INFECTION [None]
